FAERS Safety Report 17595239 (Version 1)
Quarter: 2020Q1

REPORT INFORMATION
  Report Type: Spontaneous
  Country: US (occurrence: US)
  Receive Date: 20200328
  Receipt Date: 20200328
  Transmission Date: 20200409
  Serious: Yes (Hospitalization, Other)
  Sender: FDA-Public Use
  Company Number: US-TEVA-2020-US-1215224

PATIENT
  Sex: Female

DRUGS (4)
  1. LEXAPRO [Concomitant]
     Active Substance: ESCITALOPRAM OXALATE
     Route: 065
  2. LORAZEPAM. [Concomitant]
     Active Substance: LORAZEPAM
     Dosage: LORAZEPAM 1MG AS NEEDED
     Route: 065
  3. CLOZAPINE TEVA [Suspect]
     Active Substance: CLOZAPINE
     Indication: SCHIZOPHRENIA
     Dosage: 325 MILLIGRAM DAILY;
     Route: 065
  4. CLOZAPINE TEVA [Suspect]
     Active Substance: CLOZAPINE
     Dosage: 300 MILLIGRAM DAILY; DISINTEGRATING TABLET
     Route: 065

REACTIONS (6)
  - Apathy [Unknown]
  - White blood cell count decreased [Unknown]
  - Asocial behaviour [Unknown]
  - Catatonia [Unknown]
  - Delusion [Unknown]
  - Hallucination, visual [Unknown]

NARRATIVE: CASE EVENT DATE: 2019
